FAERS Safety Report 8329303-5 (Version None)
Quarter: 2012Q2

REPORT INFORMATION
  Report Type: 
  Country: None (occurrence: None)
  Receive Date: 20120502
  Receipt Date: 20110621
  Transmission Date: 20120825
  Serious: No
  Sender: FDA-Public Use
  Company Number: US-ASTRAZENECA-2011SE17528

PATIENT
  Age: 19346 Day
  Sex: Female
  Weight: 53 kg

DRUGS (1)
  1. FASLODEX [Suspect]
     Route: 030

REACTIONS (5)
  - THROAT TIGHTNESS [None]
  - ADVERSE DRUG REACTION [None]
  - DIZZINESS [None]
  - FEELING ABNORMAL [None]
  - DYSPNOEA [None]
